FAERS Safety Report 7096463-6 (Version None)
Quarter: 2010Q4

REPORT INFORMATION
  Report Type: 
  Country: None (occurrence: None)
  Receive Date: 20101111
  Receipt Date: 20101102
  Transmission Date: 20110411
  Serious: Yes (Other)
  Sender: FDA-Public Use
  Company Number: GXKR2010GB12369

PATIENT
  Sex: Female

DRUGS (4)
  1. CLARITHROMYCIN [Suspect]
     Dosage: UNK
     Route: 065
  2. CORTISONE [Suspect]
     Dosage: UNK
     Route: 065
  3. PANDEMRIX [Suspect]
     Indication: PROPHYLAXIS
     Dosage: 1 DF, QD
     Route: 065
     Dates: start: 20091101, end: 20091101
  4. INFLUENZA VIRUS VACCINE [Suspect]
     Indication: PROPHYLAXIS
     Dosage: 1 DF, ONCE/SINGLE
     Dates: start: 20091001, end: 20091001

REACTIONS (9)
  - ARTHRALGIA [None]
  - ASTHMA [None]
  - CHOKING [None]
  - CONDITION AGGRAVATED [None]
  - FATIGUE [None]
  - FEELING ABNORMAL [None]
  - INSOMNIA [None]
  - OBSTRUCTIVE AIRWAYS DISORDER [None]
  - RHINITIS [None]
